FAERS Safety Report 26206251 (Version 1)
Quarter: 2025Q4

REPORT INFORMATION
  Report Type: Spontaneous
  Country: JP (occurrence: JP)
  Receive Date: 20251229
  Receipt Date: 20251229
  Transmission Date: 20260117
  Serious: Yes (Other)
  Sender: TAKEDA
  Company Number: JP-TAKEDA-2025TJP013184

PATIENT
  Age: 70 Year
  Sex: Male

DRUGS (2)
  1. FRUZAQLA [Suspect]
     Active Substance: FRUQUINTINIB
     Indication: Colorectal cancer
     Dosage: UNK
  2. FRUZAQLA [Suspect]
     Active Substance: FRUQUINTINIB
     Dosage: UNK

REACTIONS (2)
  - Macular oedema [Unknown]
  - Hypertension [Unknown]
